FAERS Safety Report 24993301 (Version 1)
Quarter: 2025Q1

REPORT INFORMATION
  Report Type: Report from Study
  Country: US (occurrence: US)
  Receive Date: 20250221
  Receipt Date: 20250221
  Transmission Date: 20250409
  Serious: Yes (Other)
  Sender: ABBVIE
  Company Number: US-ABBVIE-6141411

PATIENT
  Age: 50 Year
  Sex: Female

DRUGS (1)
  1. UBRELVY [Suspect]
     Active Substance: UBROGEPANT
     Indication: Product used for unknown indication
     Route: 048
     Dates: start: 20240201

REACTIONS (2)
  - Gallbladder operation [Unknown]
  - Migraine [Unknown]

NARRATIVE: CASE EVENT DATE: 20250101
